FAERS Safety Report 12298187 (Version 1)
Quarter: 2016Q2

REPORT INFORMATION
  Report Type: Spontaneous
  Country: US (occurrence: US)
  Receive Date: 20160423
  Receipt Date: 20160423
  Transmission Date: 20160815
  Serious: No
  Sender: FDA-Public Use
  Company Number: PHEH2016US009892

PATIENT
  Age: 66 Year
  Sex: Female

DRUGS (2)
  1. IMATINIB [Suspect]
     Active Substance: IMATINIB
     Indication: CHRONIC MYELOID LEUKAEMIA
     Route: 065
  2. GLEEVEC [Concomitant]
     Active Substance: IMATINIB MESYLATE
     Indication: CHRONIC MYELOID LEUKAEMIA
     Route: 065

REACTIONS (5)
  - Throat irritation [Unknown]
  - Dysgeusia [Unknown]
  - Gastrooesophageal reflux disease [Unknown]
  - Alopecia [Unknown]
  - Nausea [Unknown]

NARRATIVE: CASE EVENT DATE: 20160418
